FAERS Safety Report 15785791 (Version 1)
Quarter: 2018Q4

REPORT INFORMATION
  Report Type: Spontaneous
  Country: US (occurrence: US)
  Receive Date: 20181212
  Receipt Date: 20181212
  Transmission Date: 20190205
  Serious: Yes (Life-Threatening, Hospitalization)
  Sender: FDA-Public Use
  Company Number: None

PATIENT
  Age: 71 Year
  Sex: Male
  Weight: 89 kg

DRUGS (2)
  1. AMILORIDE [Suspect]
     Active Substance: AMILORIDE
     Indication: HYPERTENSION
     Route: 048
     Dates: start: 20100809
  2. LISINOPRIL. [Suspect]
     Active Substance: LISINOPRIL
     Indication: HYPERTENSION
     Route: 048
     Dates: start: 20161012

REACTIONS (11)
  - Fatigue [None]
  - Constipation [None]
  - Anaemia of chronic disease [None]
  - Decreased appetite [None]
  - Treatment noncompliance [None]
  - Weight decreased [None]
  - Acute kidney injury [None]
  - Disorientation [None]
  - Hypoglycaemia [None]
  - Packed red blood cell transfusion [None]
  - Blood glucose fluctuation [None]

NARRATIVE: CASE EVENT DATE: 20181108
